FAERS Safety Report 18460490 (Version 1)
Quarter: 2020Q4

REPORT INFORMATION
  Report Type: Spontaneous
  Country: US (occurrence: US)
  Receive Date: 20201104
  Receipt Date: 20201104
  Transmission Date: 20210114
  Serious: No
  Sender: FDA-Public Use
  Company Number: US-009507513-2010USA011054

PATIENT
  Age: 85 Year
  Sex: Female

DRUGS (4)
  1. REMERON [Suspect]
     Active Substance: MIRTAZAPINE
     Indication: SLEEP DISORDER
     Dosage: 7.5 MILLIGRAM, DAILY (QD)
     Route: 048
     Dates: start: 20201006
  2. COUMADIN [Concomitant]
     Active Substance: WARFARIN SODIUM
     Dosage: UNK
  3. COZAAR [Concomitant]
     Active Substance: LOSARTAN POTASSIUM
     Dosage: UNK
  4. CRESTOR [Concomitant]
     Active Substance: ROSUVASTATIN CALCIUM
     Dosage: UNK

REACTIONS (3)
  - Abnormal dreams [Not Recovered/Not Resolved]
  - Product use in unapproved indication [Unknown]
  - Incorrect dose administered [Unknown]

NARRATIVE: CASE EVENT DATE: 20201006
